FAERS Safety Report 7017898-3 (Version None)
Quarter: 2010Q3

REPORT INFORMATION
  Report Type: 
  Country: None (occurrence: None)
  Receive Date: 20100928
  Receipt Date: 20100915
  Transmission Date: 20110219
  Serious: Yes (Hospitalization)
  Sender: FDA-Public Use
  Company Number: JP-NAPPMUNDI-MAG-2010-0001321

PATIENT
  Age: 89 Year
  Sex: Male

DRUGS (4)
  1. THEOPHYLLINE [Suspect]
     Indication: ASTHMA
     Dosage: 400 MG, DAILY
     Route: 048
  2. OMEPRAL                            /00661201/ [Concomitant]
     Dosage: 20 MG, DAILY
     Route: 048
  3. GASTER                             /00706001/ [Concomitant]
     Dosage: 20 MG, DAILY
     Route: 048
  4. SALAZOPYRIN [Concomitant]
     Dosage: 1000 MG, DAILY
     Route: 048

REACTIONS (6)
  - CONVULSION [None]
  - DIZZINESS [None]
  - DYSPNOEA [None]
  - HEADACHE [None]
  - RESTLESSNESS [None]
  - VITAMIN B6 DECREASED [None]
